FAERS Safety Report 8893792 (Version 1)
Quarter: 2012Q4

REPORT INFORMATION
  Report Type: 
  Country: US (occurrence: US)
  Receive Date: 20121107
  Receipt Date: 20121107
  Transmission Date: 20130627
  Serious: No
  Sender: FDA-Public Use
  Company Number: US-AMGEN-USASP2011024873

PATIENT
  Age: 31 Year
  Sex: Female
  Weight: 3.86 kg

DRUGS (15)
  1. ENBREL [Suspect]
     Indication: COGAN^S SYNDROME
     Dosage: 50 mg, qwk
     Route: 058
     Dates: start: 200911
  2. ENBREL [Suspect]
     Dosage: 50 mg, qwk
     Route: 058
     Dates: start: 200911
  3. ENBREL [Suspect]
     Dosage: UNK
  4. ENBREL [Suspect]
     Dosage: 50 mg, qwk
     Route: 058
     Dates: start: 200911
  5. PRENATAL VITAMINS                  /01549301/ [Concomitant]
     Dosage: UNK UNK, qd
     Route: 048
     Dates: start: 201010
  6. CALCIUM CITRATE [Concomitant]
     Dosage: 630 mg, qd
     Route: 048
     Dates: start: 2007
  7. CALCIUM CITRATE [Concomitant]
     Dosage: 750 mg, bid
     Route: 048
  8. FOLIC ACID [Concomitant]
     Dosage: 400 mug, qd
     Route: 048
     Dates: start: 201010
  9. VITAMIN D /00107901/ [Concomitant]
     Dosage: UNK UNK, qd
     Route: 048
  10. ASPIRIN [Concomitant]
     Dosage: 81 mg, qd
     Route: 048
     Dates: start: 201102, end: 20111116
  11. COLACE [Concomitant]
     Indication: CONSTIPATION
     Dosage: 100 mg, bid
     Route: 048
     Dates: start: 201107, end: 20111101
  12. PREDNISONE [Concomitant]
     Dosage: 5 mg, qd
     Route: 048
     Dates: start: 201010, end: 201102
  13. PREDNISONE [Concomitant]
     Dosage: 2.5 mg, qd
     Route: 048
     Dates: start: 201102, end: 201103
  14. ZANTAC [Concomitant]
     Indication: DYSPEPSIA
     Dosage: 150 mg, bid
     Route: 048
     Dates: start: 201107, end: 20111005
  15. LOTEMAX [Concomitant]
     Indication: COGAN^S SYNDROME
     Dosage: UNK UNK, bid
     Route: 047
     Dates: start: 200704

REACTIONS (4)
  - Iron deficiency [Recovered/Resolved]
  - Dizziness [Unknown]
  - Balance disorder [Unknown]
  - Breast cyst [Unknown]
